FAERS Safety Report 13931870 (Version 1)
Quarter: 2017Q3

REPORT INFORMATION
  Report Type: Report from Study
  Country: US (occurrence: US)
  Receive Date: 20170904
  Receipt Date: 20170904
  Transmission Date: 20171127
  Serious: Yes (Other)
  Sender: FDA-Public Use
  Company Number: US-ROCHE-1986128

PATIENT

DRUGS (5)
  1. OXALIPLATIN. [Suspect]
     Active Substance: OXALIPLATIN
     Indication: DIFFUSE LARGE B-CELL LYMPHOMA
     Dosage: ON DAY 1 OF 21 DAYS CYCLE
     Route: 042
  2. RITUXIMAB. [Suspect]
     Active Substance: RITUXIMAB
     Indication: DIFFUSE LARGE B-CELL LYMPHOMA
     Dosage: ON DAYS 1, 8, 15, AND 22 OF CYCLE 1
     Route: 042
  3. GEMCITABINE [Suspect]
     Active Substance: GEMCITABINE\GEMCITABINE HYDROCHLORIDE
     Indication: DIFFUSE LARGE B-CELL LYMPHOMA
     Dosage: 1,250 MG/M2 ON D1, D8, AND D15 OR 1,000 MG/M2  D1, AND D15 OF 28 DAYS CYCLE
     Route: 042
  4. ETOPOSIDE. [Suspect]
     Active Substance: ETOPOSIDE
     Indication: DIFFUSE LARGE B-CELL LYMPHOMA
     Dosage: ON DAY 1 AND DAY 3 OR 5 OF 28 DAYS CYCLE
     Route: 042
  5. ETOPOSIDE. [Suspect]
     Active Substance: ETOPOSIDE
     Dosage: DAY 1 TO DAY 10 OR 14 OR 21
     Route: 048

REACTIONS (18)
  - Lymphopenia [Unknown]
  - Diffuse large B-cell lymphoma [Unknown]
  - Cellulitis [Unknown]
  - Fatigue [Unknown]
  - Pain in extremity [Unknown]
  - Asthenia [Unknown]
  - Febrile neutropenia [Unknown]
  - Leukopenia [Unknown]
  - Dyspnoea [Unknown]
  - Hyperglycaemia [Unknown]
  - White blood cell count decreased [Unknown]
  - Anaemia [Unknown]
  - Hypokalaemia [Unknown]
  - Hypercalcaemia [Unknown]
  - Neutropenia [Unknown]
  - Thrombocytopenia [Unknown]
  - Sepsis [Unknown]
  - Abdominal pain [Unknown]
